FAERS Safety Report 21720596 (Version 2)
Quarter: 2023Q1

REPORT INFORMATION
  Report Type: Spontaneous
  Country: GB (occurrence: None)
  Receive Date: 20221213
  Receipt Date: 20230112
  Transmission Date: 20230418
  Serious: Yes (Hospitalization)
  Sender: FDA-Public Use
  Company Number: GB-ROCHE-3238439

PATIENT
  Sex: Female

DRUGS (1)
  1. TOCILIZUMAB [Suspect]
     Active Substance: TOCILIZUMAB
     Indication: Rheumatoid arthritis
     Route: 058
     Dates: start: 20221101

REACTIONS (11)
  - Pneumonia [Unknown]
  - Arthralgia [Unknown]
  - Malaise [Unknown]
  - Viral infection [Unknown]
  - Chest pain [Unknown]
  - Myalgia [Unknown]
  - Headache [Unknown]
  - Pruritus [Unknown]
  - Fatigue [Unknown]
  - Malaise [Unknown]
  - Inflammation [Unknown]
